FAERS Safety Report 4637247-5 (Version None)
Quarter: 2005Q2

REPORT INFORMATION
  Report Type: 
  Country: None (occurrence: None)
  Receive Date: 20050328
  Receipt Date: 20041201
  Transmission Date: 20051028
  Serious: No
  Sender: FDA-Public Use
  Company Number: USA041284984

PATIENT
  Age: 25 Year
  Sex: Female

DRUGS (3)
  1. STRATTERA [Suspect]
     Dates: start: 20041103, end: 20041117
  2. PAXIL [Concomitant]
  3. ALKA-SELTZER PLUS [Concomitant]

REACTIONS (2)
  - DRUG SCREEN POSITIVE [None]
  - NERVOUSNESS [None]
